FAERS Safety Report 9521637 (Version 1)
Quarter: 2013Q1

REPORT INFORMATION
  Report Type: Spontaneous
  Country: US (occurrence: None)
  Receive Date: 20130305
  Receipt Date: 20130305
  Transmission Date: 20140127
  Serious: Yes (Hospitalization)
  Sender: FDA-Public Use
  Company Number: 163-21880-12072204

PATIENT
  Age: 66 Year
  Sex: Male
  Weight: 111.13 kg

DRUGS (10)
  1. REVLIMID (LENALIDOMIDE) (CAPSULES) [Suspect]
     Indication: PLASMA CELL MYELOMA
     Route: 048
     Dates: start: 20120329
  2. DEXAMETHASONE (DEXAMETHASONE) (UNKNOWN) [Concomitant]
  3. ARICEPT (DONEPEZIL HYDOROCHLORIDE) (UNKNOWN) [Concomitant]
  4. ALLOPURINOL (ALLOPURINOL) (UNKNOWN) [Concomitant]
  5. CITALOPRAM (CITALOPRAM) (UNKNOWN) [Concomitant]
  6. PRAVASTATIN (PRAVASTATIN) (UNKNOWN) [Concomitant]
  7. NAMENDA (MEMANTINE HYDROCHLORIDE) (UNKNOWN) [Concomitant]
  8. TRIAM/HCTZ (DYAZIDE) (UNKNOWN) [Concomitant]
  9. GABAPENTIN (GABAPENTIN) (UNKNOWN) (GABAPENTIN) [Concomitant]
  10. PROCERA (OTHER THERAPEUTIC PRODUCTS) (UNKNOWN)? [Concomitant]

REACTIONS (1)
  - Deep vein thrombosis [None]
